FAERS Safety Report 9997585 (Version 1)
Quarter: 2014Q1

REPORT INFORMATION
  Report Type: Other
  Country: DE (occurrence: DE)
  Receive Date: 20140311
  Receipt Date: 20140311
  Transmission Date: 20141002
  Serious: Yes (Hospitalization)
  Sender: FDA-Public Use
  Company Number: DE-ACORDA-ACO_102247_2014

PATIENT
  Age: 61 Year
  Sex: Male

DRUGS (2)
  1. FAMPYRA [Suspect]
     Indication: GAIT DISTURBANCE
     Dosage: 10 MG, BID
     Route: 048
     Dates: start: 20121201
  2. AVONEX [Concomitant]
     Indication: MULTIPLE SCLEROSIS
     Dosage: 30 ?G, WEEKLY
     Route: 065
     Dates: start: 20130101

REACTIONS (1)
  - Cerebrovascular accident [Recovered/Resolved]
